FAERS Safety Report 7283615-5 (Version None)
Quarter: 2011Q1

REPORT INFORMATION
  Report Type: 
  Country: None (occurrence: None)
  Receive Date: 20110209
  Receipt Date: 20110202
  Transmission Date: 20110831
  Serious: Yes (Hospitalization)
  Sender: FDA-Public Use
  Company Number: B0697549A

PATIENT
  Sex: Female

DRUGS (12)
  1. LIPANTHYL [Concomitant]
     Route: 065
  2. NOCTRAN [Concomitant]
     Route: 065
  3. DAFALGAN [Concomitant]
     Route: 065
  4. NAAXIA [Concomitant]
     Route: 065
  5. XARELTO [Concomitant]
     Route: 065
  6. LEXOMIL [Concomitant]
     Route: 065
  7. NEXIUM [Concomitant]
     Route: 065
  8. BETADINE (TOPICAL) [Concomitant]
  9. AUGMENTIN [Suspect]
     Indication: BRONCHITIS
     Dosage: 2UNIT PER DAY
     Route: 048
     Dates: start: 20101223, end: 20101229
  10. XYZAL [Concomitant]
     Route: 065
  11. TARDYFERON [Concomitant]
     Route: 065
  12. CALCIUM 500 [Concomitant]
     Route: 065

REACTIONS (1)
  - PANCYTOPENIA [None]
